FAERS Safety Report 11830626 (Version 3)
Quarter: 2016Q3

REPORT INFORMATION
  Report Type: Spontaneous
  Country: US (occurrence: US)
  Receive Date: 20151214
  Receipt Date: 20160719
  Transmission Date: 20161109
  Serious: Yes (Other)
  Sender: FDA-Public Use
  Company Number: US-BEH-2015056532

PATIENT
  Age: 70 Year
  Sex: Female
  Weight: 48.54 kg

DRUGS (22)
  1. TYLENOL [Concomitant]
     Active Substance: ACETAMINOPHEN
  2. ACTONEL [Concomitant]
     Active Substance: RISEDRONATE SODIUM
  3. CALCIUM+D [Concomitant]
  4. CENTRUM SILVER ULTRA WOMEN [Concomitant]
  5. HIZENTRA [Suspect]
     Active Substance: HUMAN IMMUNOGLOBULIN G
     Indication: IMMUNODEFICIENCY COMMON VARIABLE
     Dosage: 8 G, QW
     Route: 058
     Dates: start: 2011
  6. HIZENTRA [Suspect]
     Active Substance: HUMAN IMMUNOGLOBULIN G
     Dosage: 4 GM 20 ML VIAL
     Route: 058
     Dates: start: 20140211
  7. EPIPEN [Concomitant]
     Active Substance: EPINEPHRINE
  8. ADVAIR HFA [Concomitant]
     Active Substance: FLUTICASONE PROPIONATE\SALMETEROL XINAFOATE
  9. PREDNISONE. [Concomitant]
     Active Substance: PREDNISONE
  10. CIPRO [Concomitant]
     Active Substance: CIPROFLOXACIN HYDROCHLORIDE
  11. SPIRIVA [Concomitant]
     Active Substance: TIOTROPIUM BROMIDE MONOHYDRATE
  12. FISH OIL [Concomitant]
     Active Substance: FISH OIL
  13. SINGULAIR [Concomitant]
     Active Substance: MONTELUKAST SODIUM
  14. GABAPENTIN. [Concomitant]
     Active Substance: GABAPENTIN
  15. DIPHENHYDRAMINE. [Concomitant]
     Active Substance: DIPHENHYDRAMINE
  16. LIDOCAINE. [Concomitant]
     Active Substance: LIDOCAINE
  17. ASPIRIN EC [Concomitant]
     Active Substance: ASPIRIN
  18. IBUPROFEN. [Concomitant]
     Active Substance: IBUPROFEN
  19. PREMARIN [Concomitant]
     Active Substance: ESTROGENS, CONJUGATED
  20. VITAMIN D3 [Concomitant]
     Active Substance: CHOLECALCIFEROL
  21. LIDOCAINE/PRILOCAINE [Concomitant]
     Active Substance: LIDOCAINE\PRILOCAINE
  22. XOPENEX [Concomitant]
     Active Substance: LEVALBUTEROL HYDROCHLORIDE

REACTIONS (4)
  - Chronic obstructive pulmonary disease [Recovered/Resolved]
  - Upper respiratory tract infection [Recovered/Resolved]
  - Sinusitis [Recovered/Resolved]
  - Lower respiratory tract infection [Recovered/Resolved]

NARRATIVE: CASE EVENT DATE: 20151126
